FAERS Safety Report 11184472 (Version 2)
Quarter: 2015Q2

REPORT INFORMATION
  Report Type: Spontaneous
  Country: KR (occurrence: KR)
  Receive Date: 20150612
  Receipt Date: 20150619
  Transmission Date: 20150821
  Serious: Yes (Hospitalization)
  Sender: FDA-Public Use
  Company Number: KR-MERCK-1506KOR006400

PATIENT
  Age: 77 Year
  Sex: Male

DRUGS (2)
  1. MELPHALAN [Suspect]
     Active Substance: MELPHALAN
     Indication: PRIMARY AMYLOIDOSIS
     Dosage: 6 CYCLE
     Route: 065
  2. DEXAMETHASONE. [Suspect]
     Active Substance: DEXAMETHASONE
     Indication: PRIMARY AMYLOIDOSIS
     Dosage: 6 CYCLES
     Route: 065

REACTIONS (2)
  - Hepatitis B [Unknown]
  - Off label use [Unknown]
